FAERS Safety Report 4598233-7 (Version None)
Quarter: 2005Q1

REPORT INFORMATION
  Report Type: 
  Country: None (occurrence: None)
  Receive Date: 20050302
  Receipt Date: 20050214
  Transmission Date: 20050727
  Serious: Yes (Hospitalization)
  Sender: FDA-Public Use
  Company Number: 2005BI000797

PATIENT
  Age: 57 Year
  Sex: Female
  Weight: 117.9352 kg

DRUGS (25)
  1. AVONEX [Suspect]
     Indication: MULTIPLE SCLEROSIS
     Dosage: 30 UG;QW;IM
     Route: 030
     Dates: start: 20020407, end: 20031101
  2. AVONEX [Suspect]
     Indication: MULTIPLE SCLEROSIS
     Dosage: 30 UG;QW;IM
     Route: 030
     Dates: start: 20031101
  3. GLUCOVANCE [Concomitant]
  4. VERAPAMIL [Concomitant]
  5. NEURONTIN [Concomitant]
  6. SYNTHROID [Concomitant]
  7. COLACE [Concomitant]
  8. ASPIRIN [Concomitant]
  9. POTASSIUM CHLORIDE [Concomitant]
  10. ZOLOFT [Concomitant]
  11. LASIX [Concomitant]
  12. MULTIVITAMIN [Suspect]
  13. FLONASE [Concomitant]
  14. SEREVENT [Concomitant]
  15. COMBIVENT [Concomitant]
  16. PULMICORT [Concomitant]
  17. XOPENEX [Concomitant]
  18. ATROVENT [Concomitant]
  19. LORTAB [Concomitant]
  20. ZANAFLEX [Concomitant]
  21. NOVALOG INSULIN PUMP [Concomitant]
  22. ZOCOR [Concomitant]
  23. NEXIUM [Concomitant]
  24. *ALAGEN [Concomitant]
  25. LEVAQUIN [Concomitant]

REACTIONS (2)
  - ABDOMINAL ADHESIONS [None]
  - SMALL INTESTINAL OBSTRUCTION [None]
